FAERS Safety Report 6061743-X (Version None)
Quarter: 2009Q1

REPORT INFORMATION
  Report Type: 
  Country: None (occurrence: None)
  Receive Date: 20090202
  Receipt Date: 20090119
  Transmission Date: 20090719
  Serious: Yes (Other)
  Sender: FDA-Public Use
  Company Number: US-B.I. PHARMACEUTICALS,INC./RIDGEFIELD-2009-BP-01155PF

PATIENT
  Sex: Female
  Weight: 78 kg

DRUGS (10)
  1. SPIRIVA [Suspect]
     Indication: CHRONIC OBSTRUCTIVE PULMONARY DISEASE
     Route: 055
     Dates: start: 20080101, end: 20080101
  2. LIPITOR [Concomitant]
     Indication: MYOCARDIAL INFARCTION
     Dates: start: 20060401
  3. NEURONTIN [Concomitant]
  4. BACLOFEN [Concomitant]
  5. VISTARIL [Concomitant]
  6. OXYCONTIN [Concomitant]
  7. PERCOCET [Concomitant]
  8. PLAVIX [Concomitant]
  9. CLARITIN [Concomitant]
  10. TOPROL-XL [Concomitant]

REACTIONS (1)
  - URTICARIA [None]
